FAERS Safety Report 7981799 (Version 2)
Quarter: 2012Q4

REPORT INFORMATION
  Report Type: 
  Country: CA (occurrence: CA)
  Receive Date: 20110608
  Receipt Date: 20121109
  Transmission Date: 20130627
  Serious: Yes (Death, Other)
  Sender: FDA-Public Use
  Company Number: PHMT2006CA02196

PATIENT
  Sex: Male

DRUGS (9)
  1. SANDOSTATIN LAR [Suspect]
     Indication: RECTAL CANCER
     Dosage: 20 mg, for every 4 weeks
     Dates: start: 20050822, end: 20061122
  2. ATIVAN [Concomitant]
  3. DEMEROL [Concomitant]
  4. K-DUR [Concomitant]
  5. LOMOTIL [Concomitant]
  6. NAPROSYN [Concomitant]
  7. PANTOLOC [Concomitant]
  8. PROCHLORPERAZINE [Concomitant]
  9. ZOFRAN [Concomitant]

REACTIONS (9)
  - Death [Fatal]
  - Hypotension [Unknown]
  - General physical health deterioration [Unknown]
  - Gastrointestinal carcinoma [Unknown]
  - Metastases to liver [Unknown]
  - Jaundice [Unknown]
  - Hyperglycaemia [Unknown]
  - Injection site reaction [Unknown]
  - Fatigue [Unknown]
